FAERS Safety Report 4378174-0 (Version None)
Quarter: 2004Q2

REPORT INFORMATION
  Report Type: 
  Country: None (occurrence: None)
  Receive Date: 20040616
  Receipt Date: 20040609
  Transmission Date: 20050107
  Serious: Yes (Other)
  Sender: FDA-Public Use
  Company Number: 200415932GDDC

PATIENT
  Age: 83 Year
  Sex: Male

DRUGS (8)
  1. ALTACE [Suspect]
     Route: 048
     Dates: start: 20030501
  2. ASPIRIN [Suspect]
     Route: 048
     Dates: start: 20040604
  3. APO-FUROSEMIDE [Suspect]
     Route: 048
     Dates: start: 20040604
  4. METOPROLOL TARTRATE [Concomitant]
     Route: 048
     Dates: start: 20020101
  5. NITROLINGUAL PUMPSPRAY [Concomitant]
     Indication: ANGINA PECTORIS
     Dates: start: 20030601
  6. PREVACID [Concomitant]
     Indication: GASTROINTESTINAL DISORDER
     Route: 048
     Dates: start: 20030501
  7. RANITIDINE [Concomitant]
     Indication: GASTROINTESTINAL DISORDER
     Route: 048
     Dates: start: 20021201
  8. LIPITOR [Concomitant]
     Indication: BLOOD CHOLESTEROL INCREASED
     Route: 048
     Dates: start: 20040301

REACTIONS (5)
  - ANGIONEUROTIC OEDEMA [None]
  - DYSPNOEA [None]
  - HYPERSENSITIVITY [None]
  - OEDEMA MOUTH [None]
  - SWELLING FACE [None]
